FAERS Safety Report 7003952-9 (Version None)
Quarter: 2010Q3

REPORT INFORMATION
  Report Type: 
  Country: None (occurrence: None)
  Receive Date: 20100920
  Receipt Date: 20100122
  Transmission Date: 20110219
  Serious: No
  Sender: FDA-Public Use
  Company Number: US-WYE-H13139910

PATIENT
  Sex: Female

DRUGS (5)
  1. PRISTIQ [Suspect]
     Indication: DEPRESSION
     Route: 048
     Dates: start: 20100119
  2. XANAX [Concomitant]
  3. RITALIN [Concomitant]
  4. ZOLOFT [Concomitant]
  5. SYNTHROID [Concomitant]

REACTIONS (1)
  - ERYTHEMA [None]
